FAERS Safety Report 12404057 (Version 3)
Quarter: 2016Q3

REPORT INFORMATION
  Report Type: Spontaneous
  Country: JP (occurrence: JP)
  Receive Date: 20160525
  Receipt Date: 20160720
  Transmission Date: 20161109
  Serious: Yes (Other)
  Sender: FDA-Public Use
  Company Number: JP-GLAXOSMITHKLINE-JP2016JPN072755

PATIENT
  Age: 28 Year
  Sex: Female

DRUGS (4)
  1. LUVOX [Concomitant]
     Active Substance: FLUVOXAMINE MALEATE
     Dosage: UNK
  2. STRATTERA [Concomitant]
     Active Substance: ATOMOXETINE HYDROCHLORIDE
     Dosage: UNK
  3. LAMICTAL [Suspect]
     Active Substance: LAMOTRIGINE
     Dosage: 200 MG, QD
     Route: 048
  4. ZYPREXA [Concomitant]
     Active Substance: OLANZAPINE
     Dosage: UNK

REACTIONS (1)
  - Haemorrhage subcutaneous [Not Recovered/Not Resolved]
